FAERS Safety Report 22283845 (Version 19)
Quarter: 2025Q1

REPORT INFORMATION
  Report Type: Report from Study
  Country: US (occurrence: US)
  Receive Date: 20230504
  Receipt Date: 20250310
  Transmission Date: 20250408
  Serious: Yes (Hospitalization, Disabling, Other)
  Sender: TAKEDA
  Company Number: US-TAKEDA-2023TUS043920

PATIENT
  Age: 46 Year
  Sex: Female
  Weight: 125 kg

DRUGS (60)
  1. TEDUGLUTIDE [Suspect]
     Active Substance: TEDUGLUTIDE
     Indication: Short-bowel syndrome
     Dosage: 6.7 MILLIGRAM, QD
  2. TEDUGLUTIDE [Suspect]
     Active Substance: TEDUGLUTIDE
     Dosage: 6.7 MILLIGRAM, QD
  3. TEDUGLUTIDE [Suspect]
     Active Substance: TEDUGLUTIDE
     Dosage: 6.7 MILLIGRAM, QD
  4. TEDUGLUTIDE [Suspect]
     Active Substance: TEDUGLUTIDE
     Dosage: 6.3 MILLIGRAM, QD
  5. TEDUGLUTIDE [Suspect]
     Active Substance: TEDUGLUTIDE
     Dosage: 6.3 MILLIGRAM, QD
  6. TEDUGLUTIDE [Suspect]
     Active Substance: TEDUGLUTIDE
     Dosage: 6.3 MILLIGRAM, QD
  7. TEDUGLUTIDE [Suspect]
     Active Substance: TEDUGLUTIDE
     Dosage: 6.3 MILLIGRAM, QD
  8. TEDUGLUTIDE [Suspect]
     Active Substance: TEDUGLUTIDE
     Dosage: UNK UNK, QD
  9. TEDUGLUTIDE [Suspect]
     Active Substance: TEDUGLUTIDE
     Dosage: 6.6 MILLIGRAM, QD
  10. TEDUGLUTIDE [Suspect]
     Active Substance: TEDUGLUTIDE
     Dosage: 6.6 MILLIGRAM, QD
  11. TEDUGLUTIDE [Suspect]
     Active Substance: TEDUGLUTIDE
  12. TEDUGLUTIDE [Suspect]
     Active Substance: TEDUGLUTIDE
     Dosage: 0.66 MILLILITER, QD
  13. TEDUGLUTIDE [Suspect]
     Active Substance: TEDUGLUTIDE
  14. TEDUGLUTIDE [Suspect]
     Active Substance: TEDUGLUTIDE
     Dosage: 6.6 MILLIGRAM, QD
  15. INVEGA SUSTENNA [Concomitant]
     Active Substance: PALIPERIDONE PALMITATE
  16. ACETAMINOPHEN\HYDROCODONE [Concomitant]
     Active Substance: ACETAMINOPHEN\HYDROCODONE
  17. ALBUTEROL SULFATE [Concomitant]
     Active Substance: ALBUTEROL SULFATE
  18. PREGABALIN [Concomitant]
     Active Substance: PREGABALIN
  19. REMERON [Concomitant]
     Active Substance: MIRTAZAPINE
  20. PRAMIPEXOLE [Concomitant]
     Active Substance: PRAMIPEXOLE
  21. FERROUS SULFATE [Concomitant]
     Active Substance: FERROUS SULFATE
  22. PANTOPRAZOLE SODIUM [Concomitant]
     Active Substance: PANTOPRAZOLE SODIUM
     Dosage: 3 MILLIGRAM, QD
  23. ONDANSETRON [Concomitant]
     Active Substance: ONDANSETRON
  24. ZOLPIDEM TARTRATE [Concomitant]
     Active Substance: ZOLPIDEM TARTRATE
  25. INSULIN GLARGINE [Concomitant]
     Active Substance: INSULIN GLARGINE
  26. VITAMIN D2 [Concomitant]
     Active Substance: ERGOCALCIFEROL
  27. DIVALPROEX SODIUM [Concomitant]
     Active Substance: DIVALPROEX SODIUM
  28. Promelac [Concomitant]
  29. ACETAMINOPHEN [Concomitant]
     Active Substance: ACETAMINOPHEN
  30. Orazinc [Concomitant]
  31. TRAZODONE HCL [Concomitant]
     Active Substance: TRAZODONE HYDROCHLORIDE
  32. REXULTI [Concomitant]
     Active Substance: BREXPIPRAZOLE
  33. METHOCARBAMOL [Concomitant]
     Active Substance: METHOCARBAMOL
  34. ALBUTEROL\IPRATROPIUM [Concomitant]
     Active Substance: ALBUTEROL\IPRATROPIUM
  35. DEPAKOTE [Concomitant]
     Active Substance: DIVALPROEX SODIUM
  36. CIPROFLOXACIN HYDROCHLORIDE [Concomitant]
     Active Substance: CIPROFLOXACIN HYDROCHLORIDE
  37. LANTUS SOLOSTAR [Concomitant]
     Active Substance: INSULIN GLARGINE
  38. INTRALIPID [Concomitant]
     Active Substance: EGG PHOSPHOLIPIDS\GLYCERIN\SOYBEAN OIL
  39. PRILOSEC [Concomitant]
     Active Substance: OMEPRAZOLE MAGNESIUM
  40. HUMALOG [Concomitant]
     Active Substance: INSULIN LISPRO
  41. LYRICA [Concomitant]
     Active Substance: PREGABALIN
  42. VITAMIN A [Concomitant]
     Active Substance: VITAMIN A
  43. VITAMIN D3 [Concomitant]
     Active Substance: CHOLECALCIFEROL
  44. MIRAPEX [Concomitant]
     Active Substance: PRAMIPEXOLE DIHYDROCHLORIDE
  45. TPN [Concomitant]
     Active Substance: AMINO ACIDS\DEXTROSE\ELECTROLYTES NOS\SOYBEAN OIL
  46. IRON [Concomitant]
     Active Substance: IRON
  47. ATIVAN [Concomitant]
     Active Substance: LORAZEPAM
  48. LAMICTAL [Concomitant]
     Active Substance: LAMOTRIGINE
  49. AMBIEN [Concomitant]
     Active Substance: ZOLPIDEM TARTRATE
  50. MIRTAZAPINE [Concomitant]
     Active Substance: MIRTAZAPINE
  51. LYRICA CR [Concomitant]
     Active Substance: PREGABALIN
  52. ALBUTEROL [Concomitant]
     Active Substance: ALBUTEROL
  53. INVEGA TRINZA [Concomitant]
     Active Substance: PALIPERIDONE PALMITATE
  54. MEDICAL FOOD [Concomitant]
     Active Substance: MEDICAL FOOD
  55. ALBUTEROL SULFATE [Concomitant]
     Active Substance: ALBUTEROL SULFATE
  56. ZINC [Concomitant]
     Active Substance: ZINC
  57. LIPITOR [Concomitant]
     Active Substance: ATORVASTATIN CALCIUM
  58. FOLIC ACID [Concomitant]
     Active Substance: FOLIC ACID
  59. LASIX [Concomitant]
     Active Substance: FUROSEMIDE
  60. BUMETANIDE [Concomitant]
     Active Substance: BUMETANIDE

REACTIONS (34)
  - Dehydration [Recovering/Resolving]
  - Road traffic accident [Recovering/Resolving]
  - Ankle fracture [Recovering/Resolving]
  - Wrist fracture [Recovering/Resolving]
  - Seizure [Recovered/Resolved]
  - Stress fracture [Recovering/Resolving]
  - Muscle rupture [Recovering/Resolving]
  - Tendon disorder [Not Recovered/Not Resolved]
  - Pollakiuria [Recovering/Resolving]
  - Diarrhoea [Recovering/Resolving]
  - Hernia [Recovered/Resolved]
  - Feeding disorder [Recovering/Resolving]
  - Urinary retention [Recovering/Resolving]
  - Urinary tract infection [Recovering/Resolving]
  - Gait disturbance [Recovered/Resolved with Sequelae]
  - Malnutrition [Recovering/Resolving]
  - Dyspepsia [Recovering/Resolving]
  - Weight decreased [Recovering/Resolving]
  - Frequent bowel movements [Recovering/Resolving]
  - Renal failure [Unknown]
  - Appetite disorder [Recovering/Resolving]
  - Abdominal pain upper [Recovering/Resolving]
  - Decreased appetite [Recovering/Resolving]
  - Nausea [Recovering/Resolving]
  - Product dose omission issue [Recovering/Resolving]
  - Product use in unapproved indication [Unknown]
  - Protein total decreased [Not Recovered/Not Resolved]
  - Blood pressure decreased [Unknown]
  - Blood copper decreased [Unknown]
  - Blood iron decreased [Unknown]
  - Asthenia [Not Recovered/Not Resolved]
  - Swelling [Unknown]
  - Road traffic accident [Unknown]
  - Incorrect dose administered [Unknown]

NARRATIVE: CASE EVENT DATE: 20231023
